FAERS Safety Report 6501795-3 (Version None)
Quarter: 2009Q4

REPORT INFORMATION
  Report Type: 
  Country: None (occurrence: None)
  Receive Date: 20091216
  Receipt Date: 20090914
  Transmission Date: 20100525
  Serious: No
  Sender: FDA-Public Use
  Company Number: US-AMGEN-KDL364392

PATIENT
  Sex: Female

DRUGS (8)
  1. ARANESP [Suspect]
     Indication: RENAL FAILURE CHRONIC
  2. UNSPECIFIED MEDICATION [Concomitant]
  3. UNSPECIFIED GASTROINTESTINAL AGENT [Concomitant]
  4. IRON [Concomitant]
  5. THYROID TAB [Concomitant]
  6. ARICEPT [Concomitant]
  7. NIACIN [Concomitant]
  8. VITAMIN B-12 [Concomitant]

REACTIONS (1)
  - HAEMOGLOBIN INCREASED [None]
